FAERS Safety Report 23794843 (Version 4)
Quarter: 2024Q3

REPORT INFORMATION
  Report Type: Other
  Country: US (occurrence: US)
  Receive Date: 20240429
  Receipt Date: 20240702
  Transmission Date: 20241017
  Serious: Yes (Hospitalization, Other)
  Sender: TRAVERE THERAPEUTICS
  Company Number: US-TRAVERE-2024TVT00394

PATIENT
  Age: 48 Year
  Sex: Male

DRUGS (12)
  1. FILSPARI [Suspect]
     Active Substance: SPARSENTAN
     Indication: IgA nephropathy
     Route: 048
     Dates: start: 2024
  2. FILSPARI [Suspect]
     Active Substance: SPARSENTAN
     Dates: start: 20240418, end: 20240524
  3. FILSPARI [Suspect]
     Active Substance: SPARSENTAN
     Route: 048
  4. ATORVASTATIN [Concomitant]
     Active Substance: ATORVASTATIN
  5. CARVEDILOL [Concomitant]
     Active Substance: CARVEDILOL
  6. FAMOTIDINE [Concomitant]
     Active Substance: FAMOTIDINE
  7. FUROSEMIDE [Concomitant]
     Active Substance: FUROSEMIDE
  8. GLIPIZIDE [Concomitant]
     Active Substance: GLIPIZIDE
  9. JARDIANCE [Concomitant]
     Active Substance: EMPAGLIFLOZIN
  10. METFORMIN [Concomitant]
     Active Substance: METFORMIN HYDROCHLORIDE
  11. OZEMPIC [Concomitant]
     Active Substance: SEMAGLUTIDE
  12. TARPEYO [Concomitant]
     Active Substance: BUDESONIDE

REACTIONS (3)
  - Gastrointestinal haemorrhage [Unknown]
  - Musculoskeletal stiffness [None]
  - Muscle fatigue [None]

NARRATIVE: CASE EVENT DATE: 20240419
